FAERS Safety Report 12250316 (Version 1)
Quarter: 2016Q2

REPORT INFORMATION
  Report Type: Spontaneous
  Country: PH (occurrence: PH)
  Receive Date: 20160408
  Receipt Date: 20160408
  Transmission Date: 20160815
  Serious: Yes (Hospitalization)
  Sender: FDA-Public Use
  Company Number: PH-009507513-1603PHL014104

PATIENT
  Age: 61 Year
  Sex: Female

DRUGS (4)
  1. GLUCOBAY [Concomitant]
     Active Substance: ACARBOSE
  2. JANUMET [Suspect]
     Active Substance: METFORMIN HYDROCHLORIDE\SITAGLIPTIN PHOSPHATE
     Indication: DIABETES MELLITUS
     Dosage: 50/500 MG, ONE TABLET TWICE A DAY
     Route: 048
     Dates: start: 2011
  3. APROVEL [Concomitant]
     Active Substance: IRBESARTAN
  4. DIAMICRON [Concomitant]
     Active Substance: GLICLAZIDE

REACTIONS (1)
  - Cholelithiasis [Recovering/Resolving]

NARRATIVE: CASE EVENT DATE: 201603
